FAERS Safety Report 19826706 (Version 1)
Quarter: 2021Q3

REPORT INFORMATION
  Report Type: Spontaneous
  Country: DE (occurrence: DE)
  Receive Date: 20210913
  Receipt Date: 20210913
  Transmission Date: 20211014
  Serious: Yes (Hospitalization, Other)
  Sender: FDA-Public Use
  Company Number: DE-ABBVIE-05P-062-0294174-00

PATIENT
  Age: 60 Year
  Sex: Female

DRUGS (20)
  1. ERGENYL [Suspect]
     Active Substance: VALPROIC ACID
     Indication: DEPRESSION
     Route: 048
  2. HYPNOREX [Interacting]
     Active Substance: LITHIUM CARBONATE
     Indication: DEPRESSION
     Route: 048
     Dates: start: 199911, end: 20010118
  3. TOPAMAX [Interacting]
     Active Substance: TOPIRAMATE
     Route: 048
     Dates: start: 20010205, end: 20010208
  4. TAVOR (LORAZEPAM) [Interacting]
     Active Substance: LORAZEPAM
     Route: 048
     Dates: end: 20010319
  5. COLECALCIFEROL [Concomitant]
     Active Substance: CHOLECALCIFEROL
     Indication: PRODUCT USED FOR UNKNOWN INDICATION
  6. ZYPREXA [Concomitant]
     Active Substance: OLANZAPINE
     Indication: DEPRESSION
     Route: 048
     Dates: end: 20010118
  7. TAVOR (LORAZEPAM) [Interacting]
     Active Substance: LORAZEPAM
     Indication: DEPRESSION
     Route: 048
     Dates: start: 20010320
  8. MPA [Concomitant]
     Indication: PRODUCT USED FOR UNKNOWN INDICATION
     Route: 048
     Dates: end: 20010301
  9. MAGNESIUM [Concomitant]
     Active Substance: MAGNESIUM
     Indication: PRODUCT USED FOR UNKNOWN INDICATION
     Route: 048
     Dates: end: 20010301
  10. JATROSOM N [Interacting]
     Active Substance: TRANYLCYPROMINE SULFATE
     Route: 048
     Dates: start: 20010119, end: 20010208
  11. VIGANTOLETTEN [Concomitant]
     Active Substance: CHOLECALCIFEROL
     Indication: PRODUCT USED FOR UNKNOWN INDICATION
     Route: 048
  12. ERGENYL [Suspect]
     Active Substance: VALPROIC ACID
     Route: 048
     Dates: start: 20010129, end: 20010204
  13. ERGENYL [Suspect]
     Active Substance: VALPROIC ACID
     Route: 048
  14. TOPAMAX [Interacting]
     Active Substance: TOPIRAMATE
     Indication: DEPRESSION
     Route: 048
     Dates: start: 20010129, end: 20010204
  15. JATROSOM N [Interacting]
     Active Substance: TRANYLCYPROMINE SULFATE
     Route: 048
     Dates: start: 20010209
  16. VALPROATE SODIUM. [Suspect]
     Active Substance: VALPROATE SODIUM
     Indication: BIPOLAR DISORDER
     Route: 048
  17. HYPNOREX [Interacting]
     Active Substance: LITHIUM CARBONATE
     Route: 048
     Dates: start: 20010205, end: 20010208
  18. HYPNOREX [Interacting]
     Active Substance: LITHIUM CARBONATE
     Route: 048
  19. JATROSOM N [Interacting]
     Active Substance: TRANYLCYPROMINE SULFATE
     Indication: DEPRESSION
     Route: 048
     Dates: start: 199911, end: 20010118
  20. ESTRADERM [Concomitant]
     Active Substance: ESTRADIOL
     Indication: PRODUCT USED FOR UNKNOWN INDICATION
     Route: 062

REACTIONS (7)
  - Drug interaction [Recovered/Resolved]
  - Ataxia [Recovered/Resolved]
  - Gait disturbance [Recovered/Resolved]
  - Dysdiadochokinesis [Unknown]
  - Dizziness [Recovered/Resolved]
  - Somnolence [Recovered/Resolved]
  - Somnolence [Unknown]

NARRATIVE: CASE EVENT DATE: 20010208
